FAERS Safety Report 7440145-5 (Version None)
Quarter: 2011Q2

REPORT INFORMATION
  Report Type: 
  Country: None (occurrence: None)
  Receive Date: 20110427
  Receipt Date: 20110422
  Transmission Date: 20111010
  Serious: Yes (Other)
  Sender: FDA-Public Use
  Company Number: US-PERRIGO-11US003192

PATIENT
  Sex: Male

DRUGS (4)
  1. LOPERAMIDE HYDROCHLORIDE [Suspect]
     Dosage: UNKNOWN, DAILY
     Route: 048
     Dates: start: 20080401, end: 20110401
  2. ANTIDEPRESSANTS [Concomitant]
     Indication: DEPRESSION
     Dosage: UNK
     Route: 048
  3. UNSPECIFIED HUNTINGTON'S DISEASE MEDICATION [Concomitant]
     Indication: HUNTINGTON'S DISEASE
     Dosage: UNK
     Route: 048
  4. LOPERAMIDE HYDROCHLORIDE [Suspect]
     Indication: ABDOMINAL PAIN UPPER
     Dosage: 12 MG, SINGLE
     Route: 048
     Dates: start: 20110413, end: 20110413

REACTIONS (3)
  - INCORRECT DRUG ADMINISTRATION DURATION [None]
  - OVERDOSE [None]
  - NO ADVERSE EVENT [None]
